FAERS Safety Report 9789742 (Version 1)
Quarter: 2013Q4

REPORT INFORMATION
  Report Type: Spontaneous
  Country: US (occurrence: US)
  Receive Date: 20131231
  Receipt Date: 20131231
  Transmission Date: 20140711
  Serious: No
  Sender: FDA-Public Use
  Company Number: US-PFIZER INC-2013371233

PATIENT
  Age: 90 Year
  Sex: Male
  Weight: 79.82 kg

DRUGS (4)
  1. TRIAZOLAM [Suspect]
     Indication: SLEEP DISORDER
     Dosage: 0.75 MG, 1X/DAY
  2. ZOCOR [Concomitant]
     Indication: BLOOD CHOLESTEROL INCREASED
     Dosage: 100 MG, 1X/DAY
  3. RAMIPRIL [Concomitant]
     Indication: ARRHYTHMIA
     Dosage: 2.5 MG, 1X/DAY
  4. ASPIRIN [Concomitant]
     Dosage: 325 MG, 1X/DAY

REACTIONS (4)
  - Impaired driving ability [Not Recovered/Not Resolved]
  - Insomnia [Not Recovered/Not Resolved]
  - Activities of daily living impaired [Not Recovered/Not Resolved]
  - Malaise [Not Recovered/Not Resolved]
